FAERS Safety Report 4315551-8 (Version None)
Quarter: 2004Q1

REPORT INFORMATION
  Report Type: 
  Country: None (occurrence: None)
  Receive Date: 20040311
  Receipt Date: 20040303
  Transmission Date: 20041129
  Serious: Yes (Hospitalization)
  Sender: FDA-Public Use
  Company Number: PHEH2004US02638

PATIENT
  Age: 42 Year
  Sex: Male
  Weight: 113 kg

DRUGS (13)
  1. ZELNORM [Suspect]
     Indication: CROHN'S DISEASE
     Dosage: 6 MG BID/PRN
     Route: 048
     Dates: start: 20040202, end: 20040213
  2. KCL TAB [Concomitant]
     Dosage: 20 MEQ, QD
  3. WARFARIN SODIUM [Concomitant]
     Dosage: 2.5 MG, QD
  4. ACIPHEX [Concomitant]
     Dosage: 20 MG, QD
  5. FAMOTIDINE [Concomitant]
     Dosage: 40 MG, QD
  6. REGLAN [Concomitant]
     Dosage: 5 MG, PRN
  7. HUMULIN R [Concomitant]
     Dosage: SLIDING SCALE
  8. PREDNISONE [Concomitant]
     Dosage: 20 MG, QD
  9. IMURAN [Concomitant]
     Dosage: 50 MG, TID
  10. KADIAN [Concomitant]
     Dosage: 20 MG, TID
  11. COREG [Concomitant]
     Dosage: 25 MG, BID
  12. DIOVAN [Concomitant]
     Dosage: 80 MG, QD
  13. FUROSEMIDE [Concomitant]
     Dosage: 40 MG, TID

REACTIONS (2)
  - MEDICATION ERROR [None]
  - PAINFUL ERECTION [None]
